FAERS Safety Report 5348413-8 (Version None)
Quarter: 2007Q2

REPORT INFORMATION
  Report Type: 
  Country: None (occurrence: None)
  Receive Date: 20070606
  Receipt Date: 20070525
  Transmission Date: 20071010
  Serious: Yes (Other)
  Sender: FDA-Public Use
  Company Number: JP-PFIZER INC-2007026862

PATIENT
  Sex: Male

DRUGS (3)
  1. ZITHROMAC [Suspect]
     Indication: GINGIVAL DISORDER
     Route: 048
     Dates: start: 20070324, end: 20070326
  2. ZITHROMAC [Suspect]
     Indication: ANTIINFLAMMATORY THERAPY
  3. LOXONIN [Suspect]
     Indication: ANALGESIC THERAPY
     Dosage: DAILY DOSE:120MG
     Route: 048
     Dates: start: 20070324, end: 20070331

REACTIONS (1)
  - INTRAOCULAR PRESSURE INCREASED [None]
